FAERS Safety Report 6700080-4 (Version None)
Quarter: 2010Q2

REPORT INFORMATION
  Report Type: 
  Country: None (occurrence: None)
  Receive Date: 20100427
  Receipt Date: 20100427
  Transmission Date: 20101027
  Serious: Yes (Other)
  Sender: FDA-Public Use
  Company Number: None

PATIENT
  Sex: Male
  Weight: 81.1939 kg

DRUGS (1)
  1. NEXIUM [Suspect]
     Indication: GASTROOESOPHAGEAL REFLUX DISEASE
     Dosage: 1 CAPSULE DAILY PO
     Route: 048
     Dates: start: 20100103, end: 20100426

REACTIONS (4)
  - BLOOD SODIUM INCREASED [None]
  - NAUSEA [None]
  - PROSTATIC SPECIFIC ANTIGEN INCREASED [None]
  - VENTRICULAR EXTRASYSTOLES [None]
